FAERS Safety Report 23932972 (Version 1)
Quarter: 2024Q2

REPORT INFORMATION
  Report Type: Spontaneous
  Country: JP (occurrence: JP)
  Receive Date: 20240603
  Receipt Date: 20240603
  Transmission Date: 20240716
  Serious: Yes (Hospitalization, Other)
  Sender: FDA-Public Use
  Company Number: JP-ONO-2024JP011264

PATIENT
  Age: 69 Year
  Sex: Male
  Weight: 72 kg

DRUGS (13)
  1. EMEND [Suspect]
     Active Substance: APREPITANT
     Indication: Prophylaxis of nausea and vomiting
     Dosage: UNK
     Route: 048
     Dates: start: 20231222, end: 20231224
  2. OPDIVO [Suspect]
     Active Substance: NIVOLUMAB
     Indication: Gastric cancer
     Dosage: 360 MG
     Route: 041
     Dates: start: 20231222, end: 20231222
  3. GIMERACIL\OTERACIL\TEGAFUR [Suspect]
     Active Substance: GIMERACIL\OTERACIL POTASSIUM\TEGAFUR
     Indication: Gastric cancer
     Dosage: UNK
     Route: 048
     Dates: start: 20231222, end: 20240104
  4. OXALIPLATIN [Concomitant]
     Active Substance: OXALIPLATIN
     Indication: Gastric cancer
     Dosage: UNK
     Route: 041
     Dates: start: 20231222, end: 20231222
  5. DEXAMETHASONE SODIUM PHOSPHATE [Concomitant]
     Active Substance: DEXAMETHASONE PHOSPHATE\DEXAMETHASONE SODIUM PHOSPHATE
     Dosage: UNK
     Route: 042
     Dates: start: 20231222, end: 20231222
  6. PALONOSETRON [Concomitant]
     Active Substance: PALONOSETRON
     Dosage: UNK
     Route: 041
     Dates: start: 20231222, end: 20231222
  7. VONOPRAZAN FUMARATE [Concomitant]
     Active Substance: VONOPRAZAN FUMARATE
     Dosage: UNK
     Route: 048
     Dates: start: 20231205, end: 20240111
  8. ALLOID [Concomitant]
     Dosage: UNK, FORMULATION: *SOLUTION (EXCEPT SYRUP)
     Route: 048
     Dates: start: 20231117, end: 20240103
  9. MAGNESIUM OXIDE [Concomitant]
     Active Substance: MAGNESIUM OXIDE
     Dosage: UNK
     Route: 048
     Dates: start: 20231226, end: 20240111
  10. ELOBIXIBAT [Concomitant]
     Active Substance: ELOBIXIBAT
     Dosage: UNK
     Route: 048
     Dates: start: 20231226, end: 20240111
  11. HERBALS [Concomitant]
     Active Substance: HERBALS
     Dosage: UNK
     Route: 048
     Dates: start: 20231226, end: 20240104
  12. BILASTINE [Concomitant]
     Active Substance: BILASTINE
     Dosage: UNK
     Route: 048
  13. FLUOROURACIL [Concomitant]
     Active Substance: FLUOROURACIL
     Dosage: UNK
     Route: 065

REACTIONS (2)
  - Immune-mediated hepatitis [Recovering/Resolving]
  - Off label use [Unknown]

NARRATIVE: CASE EVENT DATE: 20231222
